FAERS Safety Report 11878599 (Version 1)
Quarter: 2015Q4

REPORT INFORMATION
  Report Type: Spontaneous
  Country: US (occurrence: None)
  Receive Date: 20151229
  Receipt Date: 20151229
  Transmission Date: 20160305
  Serious: No
  Sender: FDA-Public Use
  Company Number: None

PATIENT
  Age: 75 Year
  Sex: Male
  Weight: 84.37 kg

DRUGS (12)
  1. RENVELA [Suspect]
     Active Substance: SEVELAMER CARBONATE
     Indication: RENAL DISORDER
     Route: 048
     Dates: start: 20151224
  2. FLOMAX [Concomitant]
     Active Substance: TAMSULOSIN HYDROCHLORIDE
  3. ALDACTONE [Concomitant]
     Active Substance: SPIRONOLACTONE
  4. FUROSEMIDE. [Concomitant]
     Active Substance: FUROSEMIDE
  5. CALCITRIOL. [Concomitant]
     Active Substance: CALCITRIOL
  6. COREG [Concomitant]
     Active Substance: CARVEDILOL
  7. AMLODIPINE BESYLATE. [Concomitant]
     Active Substance: AMLODIPINE BESYLATE
  8. ASPIRIN. [Concomitant]
     Active Substance: ASPIRIN
  9. CLONIDINE. [Concomitant]
     Active Substance: CLONIDINE
  10. MINOXIDIL. [Concomitant]
     Active Substance: MINOXIDIL
  11. FISH OIL [Concomitant]
     Active Substance: FISH OIL
  12. VITAMIN B COMPLEX [Concomitant]
     Active Substance: CYANOCOBALAMIN\DEXPANTHENOL\NIACINAMIDE\PYRIDOXINE HYDROCHLORIDE\RIBOFLAVIN 5^-PHOSPHATE SODIUM\THIAMINE HYDROCHLORIDE\VITAMIN B COMPLEX

REACTIONS (2)
  - Feeling abnormal [None]
  - Abdominal discomfort [None]

NARRATIVE: CASE EVENT DATE: 20151224
